FAERS Safety Report 17196888 (Version 1)
Quarter: 2019Q4

REPORT INFORMATION
  Report Type: Spontaneous
  Country: DE (occurrence: DE)
  Receive Date: 20191224
  Receipt Date: 20191224
  Transmission Date: 20200122
  Serious: Yes (Congenital Anomaly)
  Sender: FDA-Public Use
  Company Number: DE-UCBSA-2019054109

PATIENT
  Age: 1 Day
  Sex: Male
  Weight: 2.53 kg

DRUGS (2)
  1. KEPPRA [Suspect]
     Active Substance: LEVETIRACETAM
     Indication: GENERALISED TONIC-CLONIC SEIZURE
     Dosage: 1000 MG A DAY
     Route: 064
  2. ERGENYL CHRONO [Suspect]
     Active Substance: VALPROIC ACID
     Indication: GENERALISED TONIC-CLONIC SEIZURE
     Dosage: 500 [MG/D ]
     Route: 064

REACTIONS (2)
  - Maternal exposure during pregnancy [Unknown]
  - Cerebral calcification [Unknown]

NARRATIVE: CASE EVENT DATE: 20190510
